FAERS Safety Report 4425087-1 (Version None)
Quarter: 2004Q3

REPORT INFORMATION
  Report Type: 
  Country: None (occurrence: None)
  Receive Date: 20040813
  Receipt Date: 20040805
  Transmission Date: 20050211
  Serious: Yes (Death)
  Sender: FDA-Public Use
  Company Number: US-JNJFOC-20040802424

PATIENT
  Age: 90 Year
  Sex: Male

DRUGS (1)
  1. REMINYL [Suspect]
     Indication: DRUG USE FOR UNKNOWN INDICATION
     Dosage: (ON GALANTAMINE FOR ONE YEAR)
     Route: 065

REACTIONS (1)
  - MYOCARDIAL INFARCTION [None]
